FAERS Safety Report 8176863-3 (Version None)
Quarter: 2012Q1

REPORT INFORMATION
  Report Type: 
  Country: None (occurrence: None)
  Receive Date: 20120228
  Receipt Date: 20120214
  Transmission Date: 20120608
  Serious: Yes (Other)
  Sender: FDA-Public Use
  Company Number: TCI2012A00735

PATIENT
  Age: 59 Year
  Sex: Female

DRUGS (3)
  1. NSAID'S [Suspect]
     Indication: FRACTURE
  2. NSAID'S [Suspect]
     Indication: PAIN
  3. LANSOPRAZOLE [Suspect]
     Indication: PRODUCT USED FOR UNKNOWN INDICATION
     Dosage: PER ORAL
     Route: 048

REACTIONS (7)
  - PYREXIA [None]
  - ABDOMINAL PAIN [None]
  - ABDOMINAL REBOUND TENDERNESS [None]
  - COLITIS MICROSCOPIC [None]
  - DIARRHOEA [None]
  - LARGE INTESTINAL ULCER [None]
  - INFECTIOUS PERITONITIS [None]
